FAERS Safety Report 7314461-1 (Version None)
Quarter: 2011Q1

REPORT INFORMATION
  Report Type: 
  Country: None (occurrence: None)
  Receive Date: 20110217
  Receipt Date: 20110217
  Transmission Date: 20110831
  Serious: Yes (Other)
  Sender: FDA-Public Use
  Company Number: None

PATIENT
  Age: 58 Year
  Sex: Female

DRUGS (1)
  1. ZOSYN [Suspect]
     Dosage: 3.375 GM Q8HR IV
     Route: 042
     Dates: start: 20101207, end: 20101210

REACTIONS (3)
  - ADVERSE DRUG REACTION [None]
  - RASH [None]
  - PYREXIA [None]
